FAERS Safety Report 13753675 (Version 1)
Quarter: 2017Q3

REPORT INFORMATION
  Report Type: Spontaneous
  Country: US (occurrence: US)
  Receive Date: 20170714
  Receipt Date: 20170714
  Transmission Date: 20171127
  Serious: No
  Sender: FDA-Public Use
  Company Number: US-TEVA-768281USA

PATIENT
  Sex: Female

DRUGS (2)
  1. PROAIR RESPICLICK [Suspect]
     Active Substance: ALBUTEROL SULFATE
     Indication: ASTHMA
     Dosage: 1 TO 2 PUFFS EVERY 4 TO 6 HOURS
     Dates: start: 20170508
  2. ADVAIR HFA [Concomitant]
     Active Substance: FLUTICASONE PROPIONATE\SALMETEROL XINAFOATE

REACTIONS (8)
  - Derealisation [Unknown]
  - Insomnia [Unknown]
  - Cough [Unknown]
  - Expired product administered [Unknown]
  - Dysgeusia [Not Recovered/Not Resolved]
  - Pruritus [Unknown]
  - Chest discomfort [Unknown]
  - Erythema [Unknown]

NARRATIVE: CASE EVENT DATE: 20170508
